APPROVED DRUG PRODUCT: VERMOX
Active Ingredient: MEBENDAZOLE
Strength: 500MG
Dosage Form/Route: TABLET, CHEWABLE;ORAL
Application: N208398 | Product #001
Applicant: JANSSEN PHARMACEUTICALS INC
Approved: Oct 19, 2016 | RLD: Yes | RS: No | Type: DISCN